FAERS Safety Report 23699832 (Version 3)
Quarter: 2024Q2

REPORT INFORMATION
  Report Type: Spontaneous
  Country: US (occurrence: US)
  Receive Date: 20240403
  Receipt Date: 20240521
  Transmission Date: 20240715
  Serious: No
  Sender: FDA-Public Use
  Company Number: US-JNJFOC-20240375080

PATIENT
  Sex: Male
  Weight: 87 kg

DRUGS (2)
  1. STELARA [Suspect]
     Active Substance: USTEKINUMAB
     Indication: Psoriasis
     Dosage: FREQUENCY -45 MG SUBCUTANEOUSLY AT WEEK 0, WEEK 4, THEN EVERY 12 WEEKS  THEREAFTER FOR MAINTENANCE.
     Route: 058
     Dates: start: 20240229
  2. STELARA [Suspect]
     Active Substance: USTEKINUMAB

REACTIONS (2)
  - Device defective [Unknown]
  - Accidental exposure to product [Unknown]
